FAERS Safety Report 4685345-2 (Version None)
Quarter: 2005Q2

REPORT INFORMATION
  Report Type: 
  Country: None (occurrence: None)
  Receive Date: 20050608
  Receipt Date: 20041119
  Transmission Date: 20051028
  Serious: Yes (Other)
  Sender: FDA-Public Use
  Company Number: US-MERCK-0411USA03192

PATIENT
  Age: 37 Year
  Sex: Female

DRUGS (3)
  1. SINGULAIR [Suspect]
     Route: 048
     Dates: end: 20040802
  2. SEREVENT [Concomitant]
     Route: 065
     Dates: end: 20040720
  3. PULMICORT [Concomitant]
     Route: 065
     Dates: end: 20040802

REACTIONS (2)
  - ADVERSE EVENT [None]
  - DRUG EXPOSURE DURING PREGNANCY [None]
